FAERS Safety Report 16025341 (Version 1)
Quarter: 2019Q1

REPORT INFORMATION
  Report Type: Spontaneous
  Country: US (occurrence: US)
  Receive Date: 20190301
  Receipt Date: 20190301
  Transmission Date: 20190418
  Serious: Yes (Death, Hospitalization, Other)
  Sender: FDA-Public Use
  Company Number: US-MYLANLABS-2019M1017441

PATIENT
  Age: 43 Year
  Sex: Female

DRUGS (5)
  1. PREDNISONE. [Suspect]
     Active Substance: PREDNISONE
     Indication: RHEUMATIC DISORDER
     Dosage: 30 MILLIGRAM, QD
     Route: 065
  2. TRIMETHOPRIM SULFAMETHOXAZOLE [Concomitant]
     Active Substance: SULFAMETHOXAZOLE\TRIMETHOPRIM
     Indication: ANTIFUNGAL PROPHYLAXIS
     Route: 065
  3. PREDNISONE. [Suspect]
     Active Substance: PREDNISONE
     Indication: OVERLAP SYNDROME
  4. HYDROXYCHLOROQUINE [Suspect]
     Active Substance: HYDROXYCHLOROQUINE
     Indication: RHEUMATIC DISORDER
  5. HYDROXYCHLOROQUINE [Suspect]
     Active Substance: HYDROXYCHLOROQUINE
     Indication: OVERLAP SYNDROME
     Route: 065

REACTIONS (6)
  - Vomiting [Unknown]
  - Disseminated tuberculosis [Fatal]
  - Septic shock [Fatal]
  - Pyomyositis [Fatal]
  - Infection reactivation [Recovered/Resolved]
  - Pneumonia [Unknown]
